FAERS Safety Report 25149362 (Version 1)
Quarter: 2025Q2

REPORT INFORMATION
  Report Type: Spontaneous
  Country: US (occurrence: US)
  Receive Date: 20250402
  Receipt Date: 20250402
  Transmission Date: 20250716
  Serious: Yes (Other)
  Sender: SANOFI AVENTIS
  Company Number: US-SANOFI-02462784

PATIENT
  Age: 59 Year
  Sex: Male

DRUGS (1)
  1. LOVENOX [Suspect]
     Active Substance: ENOXAPARIN SODIUM
     Indication: Thrombosis prophylaxis
     Dosage: UNK UNK, QD (ONCE A DAY IN HIS STOMACH IN THE AFTERNOON WHILE HOSPITALIZED)
     Route: 058
     Dates: start: 202503

REACTIONS (7)
  - Hallucination [Unknown]
  - Paranoia [Unknown]
  - Mania [Unknown]
  - Flushing [Unknown]
  - Euphoric mood [Unknown]
  - Mental disorder [Unknown]
  - Agitation [Unknown]

NARRATIVE: CASE EVENT DATE: 20250101
